FAERS Safety Report 4807276-7 (Version None)
Quarter: 2005Q4

REPORT INFORMATION
  Report Type: 
  Country: None (occurrence: None)
  Receive Date: 20051024
  Receipt Date: 20051004
  Transmission Date: 20060501
  Serious: Yes (Hospitalization, Other)
  Sender: FDA-Public Use
  Company Number: US-MERCK-0510USA03093

PATIENT
  Age: 70 Year
  Sex: Male
  Weight: 95 kg

DRUGS (13)
  1. VIOXX [Suspect]
     Indication: ARTHRITIS
     Route: 048
     Dates: start: 20030604, end: 20040916
  2. TRAMADOL HYDROCHLORIDE [Concomitant]
     Route: 048
  3. METHYLPREDNISOLONE [Concomitant]
     Route: 048
  4. COMBIVENT [Concomitant]
     Route: 055
  5. AMOXICILLIN [Concomitant]
     Route: 048
  6. COZAAR [Concomitant]
     Route: 048
  7. ACETAMINOPHEN AND PROPOXYPHENE NAPSYLATE [Concomitant]
     Route: 048
  8. PLAVIX [Concomitant]
     Route: 048
  9. ALPRAZOLAM [Concomitant]
     Route: 048
  10. MECLIZINE HYDROCHLORIDE [Concomitant]
     Route: 048
  11. VIGAMOX [Concomitant]
     Route: 065
  12. ULTRAM [Concomitant]
     Route: 065
  13. ASPIRIN [Concomitant]
     Route: 048

REACTIONS (8)
  - ANGIOPATHY [None]
  - ARRHYTHMIA [None]
  - CEREBROVASCULAR ACCIDENT [None]
  - COLD SWEAT [None]
  - DIZZINESS [None]
  - DYSPNOEA [None]
  - HEART RATE IRREGULAR [None]
  - LIPIDS ABNORMAL [None]
